APPROVED DRUG PRODUCT: OLANZAPINE
Active Ingredient: OLANZAPINE
Strength: 15MG
Dosage Form/Route: TABLET;ORAL
Application: A204319 | Product #005 | TE Code: AB
Applicant: QILU PHARMACEUTICAL CO LTD
Approved: Jan 27, 2016 | RLD: No | RS: No | Type: RX